FAERS Safety Report 25796103 (Version 3)
Quarter: 2025Q4

REPORT INFORMATION
  Report Type: Report from Study
  Country: EU (occurrence: None)
  Receive Date: 20250912
  Receipt Date: 20251228
  Transmission Date: 20260119
  Serious: Yes (Other)
  Sender: UCB
  Company Number: EU-UCBSA-2025013693

PATIENT
  Weight: 52 kg

DRUGS (13)
  1. BIMEKIZUMAB [Suspect]
     Active Substance: BIMEKIZUMAB
     Indication: Axial spondyloarthritis
     Dosage: 160 MILLIGRAM, MONTHLY (QM)
  2. VITAMIN D [Concomitant]
     Active Substance: VITAMIN D NOS
     Indication: Prophylaxis
  3. TRAMADOL [Concomitant]
     Active Substance: TRAMADOL
     Indication: Axial spondyloarthritis
     Dosage: 100 MILLIGRAM, 2X/DAY (BID)
  4. ESOMEPRAZOLE [Concomitant]
     Active Substance: ESOMEPRAZOLE
     Indication: Gastrointestinal disorder
     Dosage: 20 MILLIGRAM, ONCE DAILY (QD)
  5. ESOMEPRAZOLE [Concomitant]
     Active Substance: ESOMEPRAZOLE
     Dosage: 20 MILLIGRAM, AS NEEDED (PRN)
  6. PREDNISOLONE ACETATE [Concomitant]
     Active Substance: PREDNISOLONE ACETATE
     Indication: Axial spondyloarthritis
     Dosage: 2 MILLILITER, ONCE DAILY (QD)
  7. DICLOFENAC [Concomitant]
     Active Substance: DICLOFENAC
     Indication: Axial spondyloarthritis
     Dosage: 75 MILLIGRAM, 2X/DAY (BID)
  8. PIROXICAM [Concomitant]
     Active Substance: PIROXICAM
     Indication: Axial spondyloarthritis
     Dosage: 20 MILLIGRAM, AS NEEDED (PRN)
  9. ADALIMUMAB [Concomitant]
     Active Substance: ADALIMUMAB
     Indication: Axial spondyloarthritis
     Dosage: UNK
  10. CELECOXIB [Concomitant]
     Active Substance: CELECOXIB
     Indication: Axial spondyloarthritis
     Dosage: 100 MILLIGRAM, 2X/DAY (BID)
  11. CHOLECALCIFEROL [Concomitant]
     Active Substance: CHOLECALCIFEROL
     Indication: Prophylaxis
     Dosage: 50000 INTERNATIONAL UNIT, MONTHLY (QM)
  12. PREDNISONE [Concomitant]
     Active Substance: PREDNISONE
     Indication: Axial spondyloarthritis
     Dosage: 60 MILLIGRAM, ONCE DAILY (QD)
  13. PREDNISONE [Concomitant]
     Active Substance: PREDNISONE
     Dosage: 40 MILLIGRAM, ONCE DAILY (QD)

REACTIONS (10)
  - Gastritis erosive [Recovering/Resolving]
  - Fungal oesophagitis [Recovered/Resolved]
  - Infected dermal cyst [Not Recovered/Not Resolved]
  - Asthenia [Not Recovered/Not Resolved]
  - Dry eye [Recovered/Resolved]
  - Oral candidiasis [Recovered/Resolved]
  - Oral fungal infection [Recovered/Resolved]
  - Gastrointestinal disorder [Recovering/Resolving]
  - Hiatus hernia [Not Recovered/Not Resolved]
  - Chalazion [Recovering/Resolving]
